FAERS Safety Report 5799330-0 (Version None)
Quarter: 2008Q3

REPORT INFORMATION
  Report Type: 
  Country: None (occurrence: None)
  Receive Date: 20080702
  Receipt Date: 20080623
  Transmission Date: 20090109
  Serious: Yes (Hospitalization)
  Sender: FDA-Public Use
  Company Number: FR-PFIZER INC-2008052960

PATIENT
  Sex: Male

DRUGS (14)
  1. LYRICA [Suspect]
     Route: 048
     Dates: start: 20080201, end: 20080326
  2. TRAMADOL HCL [Suspect]
     Route: 048
     Dates: start: 20080201, end: 20080326
  3. CLONAZEPAM [Suspect]
     Route: 048
     Dates: start: 20080201, end: 20080326
  4. DULOXETINE [Suspect]
     Route: 048
     Dates: start: 20080226, end: 20080326
  5. METFORMIN HYDROCHLORIDE/ROSIGLITAZONE [Concomitant]
  6. ALFUZOSIN HCL [Concomitant]
  7. HEXAQUINE [Concomitant]
  8. PANTOPRAZOLE SODIUM [Concomitant]
  9. LOPRAZOLAM [Concomitant]
  10. KETOCONAZOLE [Concomitant]
  11. CARBOSYMAG [Concomitant]
  12. TRIMEBUTINE MALEATE [Concomitant]
  13. MOVICOL [Concomitant]
  14. TRAMADOL HCL [Concomitant]

REACTIONS (3)
  - DYSPHONIA [None]
  - PRURITUS [None]
  - URTICARIA [None]
